FAERS Safety Report 17920235 (Version 7)
Quarter: 2021Q1

REPORT INFORMATION
  Report Type: Report from Study
  Country: US (occurrence: US)
  Receive Date: 20200620
  Receipt Date: 20210223
  Transmission Date: 20210419
  Serious: No
  Sender: FDA-Public Use
  Company Number: NVSC2020US172383

PATIENT
  Age: 72 Year
  Sex: Male

DRUGS (1)
  1. ENTRESTO [Suspect]
     Active Substance: SACUBITRIL\VALSARTAN
     Indication: PRODUCT USED FOR UNKNOWN INDICATION
     Dosage: 1 DF, BID (97/103 MG)
     Route: 048
     Dates: start: 20200610

REACTIONS (11)
  - Nasopharyngitis [Recovering/Resolving]
  - Cough [Unknown]
  - Hypotension [Recovering/Resolving]
  - Sinus disorder [Unknown]
  - Wrong technique in product usage process [Not Recovered/Not Resolved]
  - Somnolence [Recovering/Resolving]
  - Malaise [Unknown]
  - Dyspnoea [Recovering/Resolving]
  - Hypersensitivity [Unknown]
  - Fatigue [Recovering/Resolving]
  - Animal bite [Unknown]

NARRATIVE: CASE EVENT DATE: 202006
